FAERS Safety Report 7201786-3 (Version None)
Quarter: 2010Q4

REPORT INFORMATION
  Report Type: 
  Country: None (occurrence: None)
  Receive Date: 20101201
  Receipt Date: 20101124
  Transmission Date: 20110411
  Serious: No
  Sender: FDA-Public Use
  Company Number: US-145103

PATIENT
  Age: 21 Year
  Sex: Male

DRUGS (1)
  1. WINRHO [Suspect]
     Indication: IDIOPATHIC THROMBOCYTOPENIC PURPURA
     Dosage: 75 UG/KG INTRAVENOUS
     Route: 042
     Dates: start: 20100101, end: 20100101

REACTIONS (4)
  - HAEMOGLOBIN DECREASED [None]
  - INTRAVASCULAR HAEMOLYSIS [None]
  - JAUNDICE [None]
  - OVERDOSE [None]
